FAERS Safety Report 22346703 (Version 1)
Quarter: 2023Q2

REPORT INFORMATION
  Report Type: Report from Study
  Country: US (occurrence: US)
  Receive Date: 20230520
  Receipt Date: 20230520
  Transmission Date: 20230721
  Serious: Yes (Other)
  Sender: FDA-Public Use
  Company Number: US-002147023-NVSC2023US112266

PATIENT
  Sex: Female
  Weight: 74.83 kg

DRUGS (5)
  1. COSENTYX [Suspect]
     Active Substance: SECUKINUMAB
     Indication: Psoriasis
     Dosage: 300 MG
     Route: 058
  2. COSENTYX [Suspect]
     Active Substance: SECUKINUMAB
     Dosage: 4 DOSAGE FORM (4 PENS INJECT SUBQ)
     Route: 058
  3. TRIAMCINOLONE [Suspect]
     Active Substance: TRIAMCINOLONE
     Indication: Psoriasis
     Dosage: UNK
     Route: 065
  4. LISINOPRIL [Suspect]
     Active Substance: LISINOPRIL
     Indication: Psoriasis
     Dosage: 10 MG
     Route: 048
  5. WELLBUTRIN [Suspect]
     Active Substance: BUPROPION HYDROCHLORIDE
     Indication: Psoriasis
     Dosage: 300 MG, WELLBUTRIN XL (EXTENDED RELEASE TABLET)
     Route: 048

REACTIONS (9)
  - Psoriatic arthropathy [Unknown]
  - Psoriasis [Unknown]
  - Dermatitis contact [Unknown]
  - Skin exfoliation [Unknown]
  - Eczema [Unknown]
  - Blood immunoglobulin A decreased [Unknown]
  - Stress [Unknown]
  - Product use issue [Unknown]
  - Drug ineffective [Unknown]
